FAERS Safety Report 18376405 (Version 1)
Quarter: 2020Q4

REPORT INFORMATION
  Report Type: Report from Study
  Country: US (occurrence: US)
  Receive Date: 20201013
  Receipt Date: 20201013
  Transmission Date: 20210114
  Serious: Yes (Death)
  Sender: FDA-Public Use
  Company Number: US-PFIZER INC-2020392445

PATIENT
  Age: 10 Month
  Sex: Female

DRUGS (3)
  1. THIOTEPA. [Suspect]
     Active Substance: THIOTEPA
     Indication: PINEALOBLASTOMA
     Dosage: 300 MG/M2, DAILY(ON DAYS -5, -4, AND -3) 300 MG/M2, DAILY(DAYS -5, -4, AND -3)
  2. CARBOPLATIN. [Suspect]
     Active Substance: CARBOPLATIN
     Indication: PINEALOBLASTOMA
     Dosage: 500 MG/M2, DAILY (ON DAYS -8, -7, AND -6)
  3. ETOPOSIDE. [Suspect]
     Active Substance: ETOPOSIDE
     Indication: PINEALOBLASTOMA
     Dosage: 250 MG/M2, DAILY (ON DAYS -5, -4, AND -3)

REACTIONS (1)
  - Septic shock [Fatal]
